FAERS Safety Report 11809467 (Version 3)
Quarter: 2021Q1

REPORT INFORMATION
  Report Type: Other
  Country: US (occurrence: US)
  Receive Date: 20151208
  Receipt Date: 20210308
  Transmission Date: 20210419
  Serious: Yes (Other)
  Sender: FDA-Public Use
  Company Number: US-ROCHE-1559598

PATIENT
  Sex: Male
  Weight: 98.9 kg

DRUGS (21)
  1. DOSTINEX [Concomitant]
     Active Substance: CABERGOLINE
     Dosage: WEEKLY
  2. NUTROPIN AQ [Suspect]
     Active Substance: SOMATROPIN
     Indication: GROWTH HORMONE DEFICIENCY
     Route: 058
  3. HYDRODIURIL [Concomitant]
     Active Substance: HYDROCHLOROTHIAZIDE
     Dosage: TWICE DAILY
     Route: 048
  4. PATANASE [Concomitant]
     Active Substance: OLOPATADINE HYDROCHLORIDE
     Dosage: PLACE INTO THE NOSE AS NEEDED
  5. PRINIVIL [Concomitant]
     Active Substance: LISINOPRIL
     Dosage: ONCE DAILY, AT BEDTIME
     Route: 048
  6. PROTONIX [Concomitant]
     Active Substance: PANTOPRAZOLE SODIUM
     Dosage: ONCE DAILY
     Route: 048
  7. ANDROGEL [Concomitant]
     Active Substance: TESTOSTERONE
     Dosage: APPLY 2 ACTS DAILY
  8. NUTROPIN AQ [Suspect]
     Active Substance: SOMATROPIN
     Indication: HYPOPITUITARISM
     Dosage: THERAPY ONGOING STATUS: YES
     Route: 058
  9. METFORMIN [Concomitant]
     Active Substance: METFORMIN HYDROCHLORIDE
  10. ANDROGEL [Concomitant]
     Active Substance: TESTOSTERONE
     Dosage: 2 ACT DAILY
  11. NEURONTIN [Concomitant]
     Active Substance: GABAPENTIN
     Dosage: ONCE EVERY NIGHT AT BEDTIME
     Route: 048
  12. KRILL OIL [Concomitant]
     Active Substance: DIETARY SUPPLEMENT\KRILL OIL
     Dosage: TAKE BY MOUTH
     Route: 048
  13. NASONEX [Concomitant]
     Active Substance: MOMETASONE FUROATE
     Dosage: PLACE 2 SPRAYS INTO BOTH NOSTRILS TWICE DAILY
  14. COUMADIN [Concomitant]
     Active Substance: WARFARIN SODIUM
     Dosage: TAKE 2.5 MG BY MOUTH ONCE DAILY
     Route: 048
  15. LIPITOR [Concomitant]
     Active Substance: ATORVASTATIN CALCIUM
     Dosage: 1 TABLET BY MOUTH ONCE EVERY NIGHT AT BEDTIME
     Route: 048
  16. LUMIGAN [Concomitant]
     Active Substance: BIMATOPROST
     Dosage: 1 DROP ONCE EVERY NIGHT AT BEDTIME
  17. PROSCAR [Concomitant]
     Active Substance: FINASTERIDE
     Dosage: TAKE 5 MG BY MOUTH ONCE DAILY
     Route: 048
  18. SKELAXIN [Concomitant]
     Active Substance: METAXALONE
     Dosage: 1/2 TABLET ONCE TO TWICE DAILY AS NEEDED
     Route: 048
  19. RAPAFLO [Concomitant]
     Active Substance: SILODOSIN
     Dosage: 8 MG TABLET BY MOUTH ONCE DAILY
     Route: 048
  20. ALPHAGAN P [Concomitant]
     Active Substance: BRIMONIDINE TARTRATE
     Dosage: 1 DROP 3 TIMES DAILY
  21. ZYRTEC (UNITED STATES) [Concomitant]
     Dosage: TAKE 10 MG BY MOUTH ONCE DAILY
     Route: 048

REACTIONS (2)
  - Limb immobilisation [Unknown]
  - Haemarthrosis [Unknown]
